FAERS Safety Report 19895782 (Version 1)
Quarter: 2021Q3

REPORT INFORMATION
  Report Type: Spontaneous
  Country: US (occurrence: US)
  Receive Date: 20210928
  Receipt Date: 20210928
  Transmission Date: 20211014
  Serious: Yes (Hospitalization)
  Sender: FDA-Public Use
  Company Number: None

PATIENT
  Age: 46 Year
  Sex: Female

DRUGS (1)
  1. AFINITOR DISPERZ [Suspect]
     Active Substance: EVEROLIMUS
     Route: 048
     Dates: start: 202106

REACTIONS (7)
  - Ascites [None]
  - Pneumothorax [None]
  - Therapy interrupted [None]
  - Off label use [None]
  - Ammonia increased [None]
  - Confusional state [None]
  - Dyspnoea [None]

NARRATIVE: CASE EVENT DATE: 20210907
